FAERS Safety Report 13133263 (Version 1)
Quarter: 2017Q1

REPORT INFORMATION
  Report Type: Spontaneous
  Country: FR (occurrence: FR)
  Receive Date: 20170120
  Receipt Date: 20170120
  Transmission Date: 20170428
  Serious: Yes (Death, Hospitalization)
  Sender: FDA-Public Use
  Company Number: FR-TOLMAR, INC.-2017FR000480

PATIENT
  Age: 76 Year
  Sex: Male

DRUGS (10)
  1. ELIGARD [Suspect]
     Active Substance: LEUPROLIDE ACETATE
     Indication: PROSTATE CANCER METASTATIC
     Dosage: , 1 INJECTION EVERY 6 MONTHSK
     Route: 058
     Dates: start: 2012
  2. METFORMINE [Concomitant]
     Active Substance: METFORMIN HYDROCHLORIDE
  3. KARDEGIC [Concomitant]
     Active Substance: ASPIRIN LYSINE
     Dosage: 75 MG, UNK
  4. ELIGARD [Suspect]
     Active Substance: LEUPROLIDE ACETATE
     Dosage: UNK, INJECTION EVERY 6 MONTHS
     Route: 058
     Dates: start: 20160329, end: 201609
  5. THERALENE [Concomitant]
     Active Substance: TRIMEPRAZINE
     Dosage: UNK
     Dates: start: 201504, end: 201512
  6. GABACET [Concomitant]
  7. LEVODOPA BENSERAZIDE [Concomitant]
     Active Substance: BENSERAZIDE\LEVODOPA
     Dosage: UNK
     Dates: start: 20151219
  8. MODOPAR [Suspect]
     Active Substance: BENSERAZIDE HYDROCHLORIDE\LEVODOPA
     Indication: PARKINSON^S DISEASE
     Dosage: 62.5 MG, TID
     Route: 048
     Dates: start: 20151219
  9. MODOPAR [Suspect]
     Active Substance: BENSERAZIDE HYDROCHLORIDE\LEVODOPA
     Dosage: 62.5 MG, DAILY
     Route: 048
     Dates: start: 20160308
  10. PERMIXON [Concomitant]
     Active Substance: SAW PALMETTO
     Dosage: 160 MG, UNK

REACTIONS (4)
  - Gait disturbance [Unknown]
  - Road traffic accident [Fatal]
  - Vertigo [Not Recovered/Not Resolved]
  - General physical condition abnormal [Unknown]

NARRATIVE: CASE EVENT DATE: 20160607
